FAERS Safety Report 6958299-3 (Version None)
Quarter: 2010Q3

REPORT INFORMATION
  Report Type: 
  Country: None (occurrence: None)
  Receive Date: 20100831
  Receipt Date: 20100825
  Transmission Date: 20110219
  Serious: Yes (Hospitalization)
  Sender: FDA-Public Use
  Company Number: A0877686A

PATIENT
  Age: 51 Year
  Sex: Male

DRUGS (3)
  1. COMBIVIR [Suspect]
     Indication: HIV INFECTION
     Dosage: 1TAB TWICE PER DAY
     Route: 048
  2. VIRACEPT [Suspect]
     Indication: HIV INFECTION
     Route: 065
  3. NEXIUM [Concomitant]

REACTIONS (1)
  - STAPHYLOCOCCAL INFECTION [None]
